FAERS Safety Report 9402502 (Version 1)
Quarter: 2013Q3

REPORT INFORMATION
  Report Type: Spontaneous
  Country: US (occurrence: None)
  Receive Date: 20130712
  Receipt Date: 20130712
  Transmission Date: 20140515
  Serious: No
  Sender: FDA-Public Use
  Company Number: None

PATIENT
  Age: 57 None
  Sex: Female

DRUGS (7)
  1. METROGEL [Suspect]
     Indication: ROSACEA
     Dosage: SMALL DROP SPREAD ON TIP OF NOSE ONCE AT BEDTIME ON THE SKIN.
     Route: 061
     Dates: start: 20080601, end: 20130701
  2. METOPROLOL [Concomitant]
  3. DIOVAN [Concomitant]
  4. NEXIUM [Concomitant]
  5. MULTIVITAMIN-MINERAL SUPPLEMENT: CALCIUM/MAGNESIUM [Concomitant]
  6. FISH OIL [Concomitant]
  7. ASPIRIN [Concomitant]

REACTIONS (5)
  - Hypoaesthesia [None]
  - Asthenia [None]
  - Pain in extremity [None]
  - Paraesthesia [None]
  - Neuropathy peripheral [None]
